FAERS Safety Report 5570837-4 (Version None)
Quarter: 2007Q4

REPORT INFORMATION
  Report Type: 
  Country: None (occurrence: None)
  Receive Date: 20071221
  Receipt Date: 20071212
  Transmission Date: 20080405
  Serious: Yes (Death)
  Sender: FDA-Public Use
  Company Number: EG-GENENTECH-253068

PATIENT
  Age: 48 Year
  Sex: Female

DRUGS (2)
  1. AVASTIN [Suspect]
     Indication: METASTASES TO LUNG
     Dosage: 5 MG, Q2W
  2. TAXOL [Concomitant]
     Indication: DRUG USE FOR UNKNOWN INDICATION

REACTIONS (4)
  - BLOOD CREATININE INCREASED [None]
  - BLOOD GASES ABNORMAL [None]
  - CONSTIPATION [None]
  - DEATH [None]
